FAERS Safety Report 12980226 (Version 1)
Quarter: 2016Q4

REPORT INFORMATION
  Report Type: Report from Study
  Country: JP (occurrence: JP)
  Receive Date: 20161128
  Receipt Date: 20161128
  Transmission Date: 20170207
  Serious: Yes (Hospitalization, Other)
  Sender: FDA-Public Use
  Company Number: JP-BRISTOL-MYERS SQUIBB COMPANY-BMS-2015-078699

PATIENT
  Age: 66 Year
  Sex: Male

DRUGS (11)
  1. NIVOLUMAB [Suspect]
     Active Substance: NIVOLUMAB
     Indication: PRODUCT USED FOR UNKNOWN INDICATION
     Dosage: 2 MG/KG, Q3WK
     Route: 041
     Dates: start: 20151111, end: 20151111
  2. NIVOLUMAB [Suspect]
     Active Substance: NIVOLUMAB
     Indication: PRODUCT USED FOR UNKNOWN INDICATION
     Dosage: 2 MG/KG, Q3WK
     Route: 041
     Dates: start: 20160302, end: 20160302
  3. NIVOLUMAB [Suspect]
     Active Substance: NIVOLUMAB
     Indication: PRODUCT USED FOR UNKNOWN INDICATION
     Dosage: 2 MG/KG, Q3WK
     Route: 041
     Dates: start: 20160210, end: 20160210
  4. NIVOLUMAB [Suspect]
     Active Substance: NIVOLUMAB
     Indication: PRODUCT USED FOR UNKNOWN INDICATION
     Dosage: 2 MG/KG, Q3WK
     Route: 041
     Dates: start: 20151021, end: 20151021
  5. NIVOLUMAB [Suspect]
     Active Substance: NIVOLUMAB
     Indication: PRODUCT USED FOR UNKNOWN INDICATION
     Dosage: 2 MG/KG, Q3WK
     Route: 041
     Dates: start: 20151202, end: 20151202
  6. IPILIMUMAB [Suspect]
     Active Substance: IPILIMUMAB
     Indication: PRODUCT USED FOR UNKNOWN INDICATION
     Dosage: 180 MG, QD
     Route: 041
     Dates: start: 20160601
  7. NIVOLUMAB [Suspect]
     Active Substance: NIVOLUMAB
     Indication: MALIGNANT MELANOMA
     Dosage: 2 MG/KG, Q3WK
     Route: 041
     Dates: start: 20150930, end: 20150930
  8. NIVOLUMAB [Suspect]
     Active Substance: NIVOLUMAB
     Indication: PRODUCT USED FOR UNKNOWN INDICATION
     Dosage: 2 MG/KG, Q3WK
     Route: 041
     Dates: start: 20151225, end: 20151225
  9. NIVOLUMAB [Suspect]
     Active Substance: NIVOLUMAB
     Indication: PRODUCT USED FOR UNKNOWN INDICATION
     Dosage: 2 MG/KG, Q3WK
     Route: 041
     Dates: start: 20160413, end: 20160413
  10. NIVOLUMAB [Suspect]
     Active Substance: NIVOLUMAB
     Indication: PRODUCT USED FOR UNKNOWN INDICATION
     Dosage: 2 MG/KG, Q3WK
     Route: 041
     Dates: start: 20160323, end: 20160323
  11. IPILIMUMAB [Suspect]
     Active Substance: IPILIMUMAB
     Indication: MALIGNANT MELANOMA
     Dosage: 180 MG, QD
     Route: 041
     Dates: start: 20160511

REACTIONS (6)
  - Hepatic function abnormal [Recovered/Resolved]
  - Hypopituitarism [Recovering/Resolving]
  - Nausea [Recovered/Resolved]
  - Hypophysitis [Recovering/Resolving]
  - Diabetes insipidus [Unknown]
  - Off label use [Unknown]

NARRATIVE: CASE EVENT DATE: 20151004
